FAERS Safety Report 21174756 (Version 1)
Quarter: 2022Q3

REPORT INFORMATION
  Report Type: Spontaneous
  Country: CN (occurrence: CN)
  Receive Date: 20220805
  Receipt Date: 20220805
  Transmission Date: 20221027
  Serious: Yes (Hospitalization, Other)
  Sender: FDA-Public Use
  Company Number: CN-BAXTER-2022BAX016656

PATIENT
  Age: 61 Year
  Sex: Female
  Weight: 39 kg

DRUGS (10)
  1. CYCLOPHOSPHAMIDE [Suspect]
     Active Substance: CYCLOPHOSPHAMIDE
     Indication: Plasma cell myeloma
     Dosage: 0.39 G, QD, (DOSAGE FORM: INJECTION), NS 100ML + CYCLOPHOSPHAMIDE 0.39G
     Route: 041
     Dates: start: 20220714, end: 20220714
  2. CYCLOPHOSPHAMIDE [Suspect]
     Active Substance: CYCLOPHOSPHAMIDE
     Dosage: 0.39 G, QD, (DOSAGE FORM: INJECTION), NS 100ML + CYCLOPHOSPHAMIDE 0.39G
     Route: 041
     Dates: start: 20220717, end: 20220717
  3. SODIUM CHLORIDE [Suspect]
     Active Substance: SODIUM CHLORIDE
     Indication: Medication dilution
     Dosage: 100 ML, QD, NS 100ML + CYCLOPHOSPHAMIDE 0.39G
     Route: 041
     Dates: start: 20220714, end: 20220714
  4. SODIUM CHLORIDE [Suspect]
     Active Substance: SODIUM CHLORIDE
     Dosage: 100 ML, QD, NS 100ML + CYCLOPHOSPHAMIDE 0.39G
     Route: 041
     Dates: start: 20220717, end: 20220717
  5. SODIUM CHLORIDE [Suspect]
     Active Substance: SODIUM CHLORIDE
     Dosage: 2 ML, QD, NS 2ML + BORTEZOMIB 1.7MG
     Route: 058
     Dates: start: 20220714, end: 20220714
  6. SODIUM CHLORIDE [Suspect]
     Active Substance: SODIUM CHLORIDE
     Dosage: 2 ML, QD, NS 2ML + BORTEZOMIB 1.7MG
     Route: 058
     Dates: start: 20220717, end: 20220717
  7. SODIUM CHLORIDE [Suspect]
     Active Substance: SODIUM CHLORIDE
     Dosage: 2 ML, QD, NS 2ML + BORTEZOMIB 1.7MG
     Route: 058
     Dates: start: 20220722, end: 20220722
  8. BORTEZOMIB [Suspect]
     Active Substance: BORTEZOMIB
     Indication: Plasma cell myeloma
     Dosage: 1.7 MG, QD, NS 2ML + BORTEZOMIB 1.7MG
     Route: 058
     Dates: start: 20220714, end: 20220714
  9. BORTEZOMIB [Suspect]
     Active Substance: BORTEZOMIB
     Dosage: 1.7 MG, QD, NS 2ML + BORTEZOMIB 1.7MG
     Route: 058
     Dates: start: 20220717, end: 20220717
  10. BORTEZOMIB [Suspect]
     Active Substance: BORTEZOMIB
     Dosage: 1.7 MG, QD, NS 2ML + BORTEZOMIB 1.7MG
     Route: 058
     Dates: start: 20220722, end: 20220722

REACTIONS (1)
  - Myelosuppression [Recovering/Resolving]

NARRATIVE: CASE EVENT DATE: 20220719
